FAERS Safety Report 12668393 (Version 2)
Quarter: 2016Q3

REPORT INFORMATION
  Report Type: Spontaneous
  Country: US (occurrence: US)
  Receive Date: 20160819
  Receipt Date: 20160819
  Transmission Date: 20161109
  Serious: Yes (Other)
  Sender: FDA-Public Use
  Company Number: US-GILEAD-2016-0227984

PATIENT
  Age: 68 Year
  Sex: Male
  Weight: 59.86 kg

DRUGS (1)
  1. HARVONI [Suspect]
     Active Substance: LEDIPASVIR\SOFOSBUVIR
     Indication: HEPATITIS C
     Dosage: UNK
     Route: 065
     Dates: start: 20151126, end: 201602

REACTIONS (7)
  - Drug ineffective [Unknown]
  - Pain in extremity [Unknown]
  - Non-small cell lung cancer stage IV [Unknown]
  - Hepatitis C [Unknown]
  - Gait disturbance [Unknown]
  - Unevaluable event [Unknown]
  - Neoplasm [Unknown]

NARRATIVE: CASE EVENT DATE: 201602
